FAERS Safety Report 7099861-X (Version None)
Quarter: 2010Q4

REPORT INFORMATION
  Report Type: 
  Country: None (occurrence: None)
  Receive Date: 20101112
  Receipt Date: 20101105
  Transmission Date: 20110411
  Serious: Yes (Other)
  Sender: FDA-Public Use
  Company Number: US-US-EMD SERONO, INC.-230156M10USA

PATIENT
  Age: 26 Year
  Sex: Female

DRUGS (3)
  1. REBIF [Suspect]
     Indication: MULTIPLE SCLEROSIS
     Route: 058
     Dates: start: 20040301, end: 20050101
  2. REBIF [Suspect]
     Route: 058
     Dates: start: 20050101, end: 20090601
  3. DILANTIN [Concomitant]

REACTIONS (1)
  - AUTOIMMUNE NEUTROPENIA [None]
